FAERS Safety Report 7429879-6 (Version None)
Quarter: 2011Q2

REPORT INFORMATION
  Report Type: 
  Country: None (occurrence: None)
  Receive Date: 20110419
  Receipt Date: 20110419
  Transmission Date: 20111010
  Serious: No
  Sender: FDA-Public Use
  Company Number: None

PATIENT
  Age: 50 Year
  Sex: Female
  Weight: 87.9978 kg

DRUGS (1)
  1. CYMBALTA [Suspect]
     Indication: DEPRESSION
     Dosage: 30MG DAILY
     Dates: start: 20110412, end: 20110415

REACTIONS (5)
  - COUGH [None]
  - UPPER RESPIRATORY TRACT INFECTION [None]
  - HEADACHE [None]
  - WHEEZING [None]
  - INSOMNIA [None]
